FAERS Safety Report 24728804 (Version 1)
Quarter: 2024Q4

REPORT INFORMATION
  Report Type: Report from Study
  Country: US (occurrence: US)
  Receive Date: 20241212
  Receipt Date: 20241212
  Transmission Date: 20250115
  Serious: Yes (Hospitalization, Other)
  Sender: TAKEDA
  Company Number: US-TAKEDA-2024TUS123562

PATIENT
  Age: 67 Year
  Sex: Male

DRUGS (12)
  1. TEDUGLUTIDE [Suspect]
     Active Substance: TEDUGLUTIDE
     Indication: Short-bowel syndrome
     Dosage: 3.5 MILLIGRAM, QD
     Dates: start: 20131212, end: 20160816
  2. TEDUGLUTIDE [Suspect]
     Active Substance: TEDUGLUTIDE
     Dosage: 3.5 MILLIGRAM, 4/WEEK
     Dates: start: 20160817, end: 20160829
  3. TEDUGLUTIDE [Suspect]
     Active Substance: TEDUGLUTIDE
     Dosage: 3.5 MILLIGRAM, QD
     Dates: start: 20160830, end: 201707
  4. TEDUGLUTIDE [Suspect]
     Active Substance: TEDUGLUTIDE
     Dosage: 3.11 MILLIGRAM, 3/WEEK
     Dates: start: 20170724, end: 20181002
  5. TEDUGLUTIDE [Suspect]
     Active Substance: TEDUGLUTIDE
     Dosage: 3.11 MILLIGRAM, 3/WEEK
     Dates: start: 20181203, end: 20220316
  6. TEDUGLUTIDE [Suspect]
     Active Substance: TEDUGLUTIDE
     Dosage: 3 MILLIGRAM, QD
     Dates: start: 202206, end: 20221122
  7. TEDUGLUTIDE [Suspect]
     Active Substance: TEDUGLUTIDE
     Dosage: 3 MILLIGRAM, 4/WEEK
     Dates: start: 20221122, end: 202302
  8. TEDUGLUTIDE [Suspect]
     Active Substance: TEDUGLUTIDE
     Dosage: 3 MILLIGRAM, 2/WEEK
     Dates: start: 202306
  9. POLYETHYLENE GLYCOL 3350 [Concomitant]
     Active Substance: POLYETHYLENE GLYCOL 3350
     Indication: Constipation
     Dosage: 17 GRAM, QD
     Dates: start: 20170717
  10. PENICILLIN [Concomitant]
     Active Substance: PENICILLIN
     Indication: Tooth infection
     Dosage: UNK
  11. IMODIUM [Concomitant]
     Active Substance: LOPERAMIDE HYDROCHLORIDE
     Indication: Diarrhoea
     Dosage: 4 MILLIGRAM, QID
     Dates: start: 20220602
  12. VITAMIN D3 [Concomitant]
     Active Substance: CHOLECALCIFEROL
     Indication: Vitamin D deficiency
     Dosage: 2000 INTERNATIONAL UNIT, QD
     Dates: start: 20200528

REACTIONS (1)
  - Deep vein thrombosis [Recovered/Resolved]

NARRATIVE: CASE EVENT DATE: 20241113
